FAERS Safety Report 10635798 (Version 2)
Quarter: 2015Q1

REPORT INFORMATION
  Report Type: Spontaneous
  Country: DE (occurrence: DE)
  Receive Date: 20141205
  Receipt Date: 20150129
  Transmission Date: 20150720
  Serious: Yes (Hospitalization)
  Sender: FDA-Public Use
  Company Number: US-ASTRAZENECA-2014SE92633

PATIENT
  Age: 241 Day
  Sex: Male
  Weight: 6.4 kg

DRUGS (11)
  1. SYNAGIS [Suspect]
     Active Substance: PALIVIZUMAB
     Indication: ANTIVIRAL PROPHYLAXIS
     Route: 030
     Dates: start: 20141008, end: 20141008
  2. SYNAGIS [Suspect]
     Active Substance: PALIVIZUMAB
     Indication: ANTIVIRAL PROPHYLAXIS
     Route: 030
     Dates: start: 20140910, end: 20140910
  3. SYNAGIS [Suspect]
     Active Substance: PALIVIZUMAB
     Indication: ANTIVIRAL PROPHYLAXIS
     Dosage: ONCE/SINGLE ADMINISTRATION
     Route: 030
     Dates: start: 20141203, end: 20141203
  4. FLUTICASONE PROPIONATE W/SALMETEROL [Concomitant]
     Active Substance: FLUTICASONE PROPIONATE\SALMETEROL XINAFOATE
     Indication: PRODUCT USED FOR UNKNOWN INDICATION
  5. SYNAGIS [Suspect]
     Active Substance: PALIVIZUMAB
     Indication: ANTIVIRAL PROPHYLAXIS
     Dosage: ONCE/SINGLE ADMINISTRATION
     Route: 030
     Dates: start: 20141231
  6. SYNAGIS [Suspect]
     Active Substance: PALIVIZUMAB
     Indication: ANTIVIRAL PROPHYLAXIS
     Route: 030
     Dates: start: 20141105, end: 20141105
  7. ZYMAFLUOR D [Concomitant]
     Indication: PRODUCT USED FOR UNKNOWN INDICATION
  8. FERROSANOL [Concomitant]
     Active Substance: FERROUS GLUCONATE
     Indication: PRODUCT USED FOR UNKNOWN INDICATION
  9. ATROVENT [Concomitant]
     Active Substance: IPRATROPIUM BROMIDE
     Indication: PRODUCT USED FOR UNKNOWN INDICATION
     Dosage: 0.9%/3%/20%
     Route: 055
     Dates: end: 20141124
  10. VIGANTOLETTEN [Concomitant]
     Active Substance: CHOLECALCIFEROL
     Indication: PRODUCT USED FOR UNKNOWN INDICATION
  11. ATROVENT [Concomitant]
     Active Substance: IPRATROPIUM BROMIDE
     Indication: PRODUCT USED FOR UNKNOWN INDICATION
     Dosage: 1 PUFF EVERY 8 HOURS
     Route: 055
     Dates: start: 20141127

REACTIONS (13)
  - Cough [Recovering/Resolving]
  - General physical health deterioration [Recovered/Resolved]
  - Abnormal faeces [Recovering/Resolving]
  - Tachypnoea [Recovering/Resolving]
  - Bronchopneumonia [Unknown]
  - Fluid intake reduced [Recovering/Resolving]
  - Wheezing [Unknown]
  - Vomiting [Recovered/Resolved]
  - Adenovirus infection [Unknown]
  - Respiratory syncytial virus bronchiolitis [Recovered/Resolved]
  - Poor quality sleep [Recovering/Resolving]
  - Pyrexia [Recovering/Resolving]
  - Obstructive airways disorder [Recovering/Resolving]

NARRATIVE: CASE EVENT DATE: 20141123
